FAERS Safety Report 14299249 (Version 2)
Quarter: 2018Q1

REPORT INFORMATION
  Report Type: Report from Study
  Country: None (occurrence: US)
  Receive Date: 20171219
  Receipt Date: 20180305
  Transmission Date: 20180509
  Serious: Yes (Hospitalization, Other)
  Sender: FDA-Public Use
  Company Number: US-ABBVIE-17K-163-2182196-00

PATIENT
  Age: 62 Year
  Sex: Female
  Weight: 95.79 kg

DRUGS (3)
  1. SYNTHROID [Suspect]
     Active Substance: LEVOTHYROXINE SODIUM
     Indication: THYROID DISORDER
     Route: 065
     Dates: start: 1986
  2. BABY ASPIRIN [Concomitant]
     Active Substance: ASPIRIN
     Indication: PRODUCT USED FOR UNKNOWN INDICATION
  3. HUMIRA [Suspect]
     Active Substance: ADALIMUMAB
     Indication: PSORIASIS
     Route: 058
     Dates: start: 2016

REACTIONS (10)
  - Knee arthroplasty [Unknown]
  - Depression [Not Recovered/Not Resolved]
  - Transient ischaemic attack [Recovered/Resolved]
  - Procedural pain [Not Recovered/Not Resolved]
  - Fall [Recovered/Resolved]
  - Device loosening [Recovered/Resolved]
  - Musculoskeletal discomfort [Unknown]
  - Anxiety [Not Recovered/Not Resolved]
  - Knee arthroplasty [Unknown]
  - Dyspnoea [Recovered/Resolved]

NARRATIVE: CASE EVENT DATE: 2017
